FAERS Safety Report 7550530-9 (Version None)
Quarter: 2011Q2

REPORT INFORMATION
  Report Type: 
  Country: None (occurrence: None)
  Receive Date: 20110615
  Receipt Date: 20110602
  Transmission Date: 20111010
  Serious: Yes (Life-Threatening, Hospitalization)
  Sender: FDA-Public Use
  Company Number: GB-MYLANLABS-2011S1011373

PATIENT
  Age: 34 Year
  Sex: Female

DRUGS (4)
  1. FLUOXETINE HCL [Suspect]
     Indication: PRODUCT USED FOR UNKNOWN INDICATION
  2. LORATADINE [Suspect]
     Indication: PRODUCT USED FOR UNKNOWN INDICATION
  3. ACETAMINOPHEN [Suspect]
     Indication: PRODUCT USED FOR UNKNOWN INDICATION
  4. CHLORPHENIRAMINE MALEATE [Suspect]
     Indication: ANAPHYLACTOID REACTION
     Route: 042

REACTIONS (6)
  - OVERDOSE [None]
  - HYPOKALAEMIA [None]
  - TORSADE DE POINTES [None]
  - ANAPHYLACTIC REACTION [None]
  - CARDIAC ARREST [None]
  - WITHDRAWAL SYNDROME [None]
